FAERS Safety Report 6411680-3 (Version None)
Quarter: 2009Q4

REPORT INFORMATION
  Report Type: 
  Country: None (occurrence: None)
  Receive Date: 20091023
  Receipt Date: 20091009
  Transmission Date: 20100525
  Serious: Yes (Other)
  Sender: FDA-Public Use
  Company Number: PHHY2009GB44086

PATIENT
  Age: 67 Year
  Sex: Female

DRUGS (3)
  1. ALISKIREN [Suspect]
     Indication: HYPERTENSION
     Dosage: 150 MG, QD
     Route: 048
     Dates: start: 20081208, end: 20090623
  2. CO-DYDRAMOL [Concomitant]
  3. RANITIDINE HYDROCHLORIDE [Concomitant]
     Dosage: UNK

REACTIONS (3)
  - ABASIA [None]
  - MUSCLE SPASMS [None]
  - MYALGIA [None]
